FAERS Safety Report 9451048 (Version 2)
Quarter: 2013Q3

REPORT INFORMATION
  Report Type: Spontaneous
  Country: US (occurrence: None)
  Receive Date: 20130807
  Receipt Date: 20130926
  Transmission Date: 20140515
  Serious: Yes (Other)
  Sender: FDA-Public Use
  Company Number: AUR-APL-2013-06503

PATIENT
  Age: 52 Year
  Sex: Female

DRUGS (11)
  1. ZIDOVUDINE [Suspect]
  2. ZIDOVUDINE [Suspect]
     Indication: HIV INFECTION
  3. NELFINAVIR MESILATE [Suspect]
  4. NELFINAVIR MESILATE [Suspect]
     Indication: HIV INFECTION
  5. STAVUDINE [Suspect]
  6. STAVUDINE [Suspect]
     Indication: HIV INFECTION
  7. INDINAVIR [Suspect]
  8. INDINAVIR [Suspect]
     Indication: HIV INFECTION
  9. LAMIVUDINE [Suspect]
  10. LAMIVUDINE [Suspect]
     Indication: HIV INFECTION
  11. CIDOFOVIR (CIDOFOVIR) [Concomitant]

REACTIONS (2)
  - Immune reconstitution inflammatory syndrome [None]
  - Progressive multifocal leukoencephalopathy [None]
